FAERS Safety Report 9951388 (Version 1)
Quarter: 2014Q1

REPORT INFORMATION
  Report Type: Report from Study
  Country: US (occurrence: US)
  Receive Date: 20140304
  Receipt Date: 20140304
  Transmission Date: 20141002
  Serious: No
  Sender: FDA-Public Use
  Company Number: US-ABBVIE-13P-163-1072402-00

PATIENT
  Age: 50 Year
  Sex: Male

DRUGS (1)
  1. HUMIRA [Suspect]
     Indication: CROHN^S DISEASE
     Dosage: ONE TIME DOSE, DAY 1
     Route: 058
     Dates: start: 20130320, end: 20130327

REACTIONS (3)
  - Night sweats [Recovered/Resolved]
  - Hot flush [Recovered/Resolved]
  - Butterfly rash [Recovered/Resolved]
